FAERS Safety Report 4584260-2 (Version None)
Quarter: 2005Q1

REPORT INFORMATION
  Report Type: 
  Country: None (occurrence: None)
  Receive Date: 20050125
  Receipt Date: 20041112
  Transmission Date: 20050727
  Serious: No
  Sender: FDA-Public Use
  Company Number: USA041082384

PATIENT
  Age: 77 Year
  Sex: Female
  Weight: 59 kg

DRUGS (4)
  1. FORTEO [Suspect]
     Indication: OSTEOPOROSIS
     Dosage: 20 UG DAY
     Dates: start: 20041014
  2. BEXTRA [Concomitant]
  3. ACETAMINOPHEN [Concomitant]
  4. WATER PILL [Concomitant]

REACTIONS (3)
  - BACK PAIN [None]
  - FALL [None]
  - WRIST FRACTURE [None]
